FAERS Safety Report 22107993 (Version 5)
Quarter: 2023Q2

REPORT INFORMATION
  Report Type: Spontaneous
  Country: CA (occurrence: CA)
  Receive Date: 20230317
  Receipt Date: 20230516
  Transmission Date: 20230722
  Serious: Yes (Other)
  Sender: FDA-Public Use
  Company Number: CA-CELLTRION INC.-2023CA005586

PATIENT

DRUGS (4)
  1. INFLECTRA [Suspect]
     Active Substance: INFLIXIMAB-DYYB
     Indication: Crohn^s disease
     Dosage: 600 MG, EVERY 5 WEEKS
     Route: 042
     Dates: start: 20220321
  2. INFLECTRA [Suspect]
     Active Substance: INFLIXIMAB-DYYB
     Dosage: 600 MG, EVERY 5 WEEKS
     Route: 042
     Dates: start: 20230317
  3. IRON [Concomitant]
     Active Substance: IRON
     Dosage: UNK
  4. IRON [Concomitant]
     Active Substance: IRON
     Dosage: 1 DF

REACTIONS (4)
  - Pneumonia streptococcal [Not Recovered/Not Resolved]
  - Off label use [Unknown]
  - Oropharyngeal pain [Not Recovered/Not Resolved]
  - C-reactive protein increased [Not Recovered/Not Resolved]

NARRATIVE: CASE EVENT DATE: 20220321
